FAERS Safety Report 5948420-8 (Version None)
Quarter: 2008Q4

REPORT INFORMATION
  Report Type: 
  Country: None (occurrence: None)
  Receive Date: 20081110
  Receipt Date: 20081110
  Transmission Date: 20090506
  Serious: No
  Sender: FDA-Public Use
  Company Number: None

PATIENT
  Age: 23 Year
  Sex: Male
  Weight: 78 kg

DRUGS (3)
  1. FLUOXETINE [Suspect]
     Indication: DEPRESSION
     Dosage: 20 MG DAILY ONCE PO
     Route: 048
     Dates: start: 20071104, end: 20081108
  2. FLUOXETINE [Suspect]
     Indication: OBSESSIVE-COMPULSIVE DISORDER
     Dosage: 20 MG DAILY ONCE PO
     Route: 048
     Dates: start: 20071104, end: 20081108
  3. MODAFINIL [Concomitant]

REACTIONS (3)
  - EDUCATIONAL PROBLEM [None]
  - HYPERSOMNIA [None]
  - SOMNOLENCE [None]
